FAERS Safety Report 6190020-1 (Version None)
Quarter: 2009Q2

REPORT INFORMATION
  Report Type: 
  Country: None (occurrence: None)
  Receive Date: 20090514
  Receipt Date: 20090511
  Transmission Date: 20091009
  Serious: Yes (Other)
  Sender: FDA-Public Use
  Company Number: GB-BAYER-200920609GPV

PATIENT
  Sex: Female

DRUGS (4)
  1. CAMPATH [Suspect]
     Indication: KIDNEY TRANSPLANT REJECTION
     Route: 042
  2. SANDIMMUNE [Concomitant]
     Indication: RENAL TRANSPLANT
  3. AZATHIOPRINE [Concomitant]
     Indication: RENAL TRANSPLANT
  4. PREDNISOLONE [Concomitant]
     Indication: RENAL TRANSPLANT

REACTIONS (1)
  - POLYARTHRITIS [None]
